FAERS Safety Report 4372296-6 (Version None)
Quarter: 2004Q2

REPORT INFORMATION
  Report Type: 
  Country: None (occurrence: None)
  Receive Date: 20040602
  Receipt Date: 20040526
  Transmission Date: 20050107
  Serious: Yes (Life-Threatening)
  Sender: FDA-Public Use
  Company Number: 2004CG01003

PATIENT
  Age: 76 Year
  Sex: Male
  Weight: 70 kg

DRUGS (6)
  1. XYLOCAINE [Suspect]
     Dosage: 15 ML
     Dates: start: 19990211
  2. CHYMODIACTIN [Suspect]
     Dates: start: 19990211
  3. HYPNOVEL [Suspect]
     Dates: start: 19990211
  4. ALFENTANIL [Suspect]
     Dosage: 300 UG ONCE IV
     Route: 042
     Dates: start: 19990211
  5. PRO-DAFALGAN [Suspect]
     Dates: start: 19990211
  6. PROFENID ^AVENTIS PHARMA^ [Suspect]
     Dates: start: 19990211

REACTIONS (2)
  - MYOCARDIAL INFARCTION [None]
  - POST PROCEDURAL COMPLICATION [None]
